FAERS Safety Report 5167495-X (Version None)
Quarter: 2006Q4

REPORT INFORMATION
  Report Type: 
  Country: None (occurrence: None)
  Receive Date: 20061130
  Receipt Date: 20061116
  Transmission Date: 20070319
  Serious: Yes (Hospitalization)
  Sender: FDA-Public Use
  Company Number: SP-2006-003346

PATIENT
  Age: 68 Year
  Sex: Female
  Weight: 69 kg

DRUGS (9)
  1. OLMETEC [Suspect]
     Indication: HYPERTENSION
     Dosage: 20 MG QD; PO
     Route: 048
     Dates: start: 20060516, end: 20060914
  2. CORDARONE [Concomitant]
  3. AMARYL [Concomitant]
  4. TOREM [Concomitant]
  5. BELOK-ZOK [Concomitant]
  6. TELFAST [Concomitant]
  7. EUTHYROX [Concomitant]
  8. MODURETIC 5-50 [Concomitant]
  9. MARCUMAR [Concomitant]

REACTIONS (3)
  - AZOTAEMIA [None]
  - ENTERITIS [None]
  - HAEMODIALYSIS [None]
